FAERS Safety Report 9436553 (Version 1)
Quarter: 2013Q3

REPORT INFORMATION
  Report Type: Spontaneous
  Country: US (occurrence: US)
  Receive Date: 20130802
  Receipt Date: 20130802
  Transmission Date: 20140515
  Serious: No
  Sender: FDA-Public Use
  Company Number: US-OPTIMER-20130137

PATIENT
  Age: 51 Year
  Sex: Female
  Weight: 63.39 kg

DRUGS (1)
  1. DIFICID [Suspect]
     Indication: CLOSTRIDIAL INFECTION
     Dosage: 200 MG, BID
     Route: 048
     Dates: start: 20130315, end: 20130325

REACTIONS (1)
  - Treatment failure [Not Recovered/Not Resolved]
